FAERS Safety Report 8028425-6 (Version None)
Quarter: 2012Q1

REPORT INFORMATION
  Report Type: 
  Country: None (occurrence: None)
  Receive Date: 20120106
  Receipt Date: 20120102
  Transmission Date: 20120608
  Serious: Yes (Disabling, Other)
  Sender: FDA-Public Use
  Company Number: DE-ABBOTT-11P-062-0835142-00

PATIENT
  Sex: Male
  Weight: 90 kg

DRUGS (3)
  1. PANTOPRAZOLE SODIUM [Concomitant]
     Indication: PRODUCT USED FOR UNKNOWN INDICATION
     Route: 048
     Dates: start: 20100517
  2. ZEMPLAR [Suspect]
     Indication: RENAL FAILURE
     Dosage: 2X2 UG PER WEEK
     Dates: start: 20100101
  3. VITARENAL [Concomitant]
     Indication: PRODUCT USED FOR UNKNOWN INDICATION
     Route: 048
     Dates: start: 20100507

REACTIONS (3)
  - RENAL IMPAIRMENT [None]
  - CONGENITAL CYSTIC KIDNEY DISEASE [None]
  - RENAL FAILURE [None]
